FAERS Safety Report 13422161 (Version 1)
Quarter: 2017Q2

REPORT INFORMATION
  Report Type: Other
  Country: IT (occurrence: IT)
  Receive Date: 20170410
  Receipt Date: 20170410
  Transmission Date: 20170830
  Serious: Yes (Hospitalization, Other)
  Sender: FDA-Public Use
  Company Number: IT-APOTEX-2017AP009619

PATIENT
  Age: 45 Year
  Sex: Female

DRUGS (2)
  1. QUETIAPINA DOC GENERICI COMPRESSE RIVESTITE CON FILM [Suspect]
     Active Substance: QUETIAPINE
     Indication: PRODUCT USED FOR UNKNOWN INDICATION
     Dosage: 10 DF, TOTAL
     Route: 048
  2. FLUOXETINE [Suspect]
     Active Substance: FLUOXETINE HYDROCHLORIDE
     Indication: PRODUCT USED FOR UNKNOWN INDICATION
     Dosage: 13 DF, TOTAL
     Route: 048

REACTIONS (4)
  - Electrocardiogram QT prolonged [Unknown]
  - Injury [Unknown]
  - Drug use disorder [Unknown]
  - Fall [Unknown]

NARRATIVE: CASE EVENT DATE: 20161228
